FAERS Safety Report 23848907 (Version 1)
Quarter: 2024Q2

REPORT INFORMATION
  Report Type: Spontaneous
  Country: CA (occurrence: CA)
  Receive Date: 20240513
  Receipt Date: 20240513
  Transmission Date: 20240716
  Serious: Yes (Other)
  Sender: FDA-Public Use
  Company Number: CA-FreseniusKabi-FK202407281

PATIENT
  Age: 40 Year
  Sex: Female

DRUGS (5)
  1. FENTANYL CITRATE [Suspect]
     Active Substance: FENTANYL CITRATE
     Indication: Product used for unknown indication
     Dosage: DOSAGE FORM: SOLUTION EPIDURAL
  2. MIDAZOLAM HYDROCHLORIDE [Suspect]
     Active Substance: MIDAZOLAM HYDROCHLORIDE
     Indication: Product used for unknown indication
     Dosage: FORM: SOLUTION INTRAMUSCULAR
  3. FENTANYL [Concomitant]
     Active Substance: FENTANYL\FENTANYL CITRATE
     Indication: Product used for unknown indication
     Dosage: FORM: SOLUTION EPIDURAL
  4. MIDAZOLAM [Concomitant]
     Active Substance: MIDAZOLAM
     Dosage: FORM: NOT SPECIFIED
  5. CATHEJELL JELLY 2% PRESERVATIVE-FREE. 12.5G SINGLE-USE SYRINGE WITH [Concomitant]
     Indication: Product used for unknown indication
     Dosage: FORM: GEL

REACTIONS (4)
  - Erythema [Recovered/Resolved]
  - Feeling hot [Recovered/Resolved]
  - Pruritus [Recovered/Resolved]
  - Tongue discomfort [Recovered/Resolved]
